FAERS Safety Report 5496910-7 (Version None)
Quarter: 2007Q4

REPORT INFORMATION
  Report Type: 
  Country: None (occurrence: None)
  Receive Date: 20071023
  Receipt Date: 20071023
  Transmission Date: 20080405
  Serious: No
  Sender: FDA-Public Use
  Company Number: None

PATIENT
  Sex: Female
  Weight: 99.7913 kg

DRUGS (1)
  1. BUMETANIDE [Suspect]
     Indication: HYPERTENSION
     Dosage: 1 MG QD PO
     Route: 048
     Dates: start: 20070701, end: 20071022

REACTIONS (3)
  - BONE DISORDER [None]
  - PAIN [None]
  - PHARMACEUTICAL PRODUCT COMPLAINT [None]
